FAERS Safety Report 23898161 (Version 1)
Quarter: 2024Q2

REPORT INFORMATION
  Report Type: Spontaneous
  Country: US (occurrence: US)
  Receive Date: 20240524
  Receipt Date: 20240524
  Transmission Date: 20240716
  Serious: No
  Sender: FDA-Public Use
  Company Number: US-VERTEX PHARMACEUTICALS-2024-008718

PATIENT

DRUGS (1)
  1. IVACAFTOR\TEZACAFTOR [Suspect]
     Active Substance: IVACAFTOR\TEZACAFTOR
     Indication: Cystic fibrosis
     Dosage: TEZACAFTOR/IVACAFTOR
     Route: 048

REACTIONS (4)
  - Distal intestinal obstruction syndrome [Unknown]
  - Biliary colic [Unknown]
  - Hepatic pain [Unknown]
  - Dyspepsia [Unknown]
